FAERS Safety Report 7603814-X (Version None)
Quarter: 2011Q3

REPORT INFORMATION
  Report Type: 
  Country: None (occurrence: None)
  Receive Date: 20110712
  Receipt Date: 20110704
  Transmission Date: 20111222
  Serious: Yes (Other)
  Sender: FDA-Public Use
  Company Number: JP-GLAXOSMITHKLINE-B0715067A

PATIENT
  Sex: Female
  Weight: 69 kg

DRUGS (9)
  1. METHOTREXATE [Concomitant]
     Indication: IMMUNOSUPPRESSION
     Dosage: 15MG PER DAY
     Route: 065
     Dates: start: 20070125, end: 20070125
  2. METHOTREXATE [Concomitant]
     Dosage: 10MG PER DAY
     Route: 065
     Dates: start: 20070127, end: 20070127
  3. METHOTREXATE [Concomitant]
     Dosage: 10MG PER DAY
     Route: 065
     Dates: start: 20070130, end: 20070130
  4. ACYCLOVIR [Concomitant]
     Dosage: 750MG PER DAY
     Route: 042
     Dates: start: 20070120, end: 20070223
  5. CYCLOSPORINE [Concomitant]
     Indication: IMMUNOSUPPRESSION
     Dosage: 200MG PER DAY
     Route: 065
     Dates: start: 20070123
  6. ALKERAN [Suspect]
     Dosage: 116MGM2 PER DAY
     Route: 042
     Dates: start: 20070122, end: 20070122
  7. TOTAL BODY IRRADIATION [Suspect]
     Indication: PRODUCT USED FOR UNKNOWN INDICATION
  8. ALKERAN [Suspect]
     Indication: ALLOGENIC BONE MARROW TRANSPLANTATION THERAPY
     Dosage: 116MGM2 PER DAY
     Route: 042
     Dates: start: 20070120, end: 20070120
  9. HEPARIN SODIUM [Concomitant]
     Dosage: 5000IU PER DAY
     Dates: start: 20070120, end: 20070223

REACTIONS (2)
  - OROPHARYNGEAL PAIN [None]
  - MUCOUS MEMBRANE DISORDER [None]
